FAERS Safety Report 21438822 (Version 1)
Quarter: 2022Q4

REPORT INFORMATION
  Report Type: Spontaneous
  Country: NL (occurrence: NL)
  Receive Date: 20221011
  Receipt Date: 20221011
  Transmission Date: 20230113
  Serious: Yes (Hospitalization, Other)
  Sender: FDA-Public Use
  Company Number: NL-LRB-00831717

PATIENT
  Sex: Male
  Weight: 87 kg

DRUGS (3)
  1. IBUPROFEN [Suspect]
     Active Substance: IBUPROFEN
     Indication: Pyrexia
     Dosage: 600 MILLIGRAM, 3 TIMES A DAY (3X A DAY 1 PIECE)
     Route: 065
     Dates: start: 20210927, end: 20210930
  2. IBUPROFEN [Suspect]
     Active Substance: IBUPROFEN
     Dosage: 400 MILLIGRAM, 3 TIMES A DAY (2 DAYS 3DD 400MG)
     Route: 065
     Dates: start: 20211001
  3. VENTOLIN [Concomitant]
     Active Substance: ALBUTEROL SULFATE
     Indication: Product used for unknown indication
     Dosage: 200 MICROGRAM/DOSIS
     Route: 065

REACTIONS (1)
  - Renal failure [Recovered/Resolved]
